FAERS Safety Report 5248636-2 (Version None)
Quarter: 2007Q1

REPORT INFORMATION
  Report Type: 
  Country: None (occurrence: None)
  Receive Date: 20070222
  Receipt Date: 20070212
  Transmission Date: 20070707
  Serious: Yes (Other)
  Sender: FDA-Public Use
  Company Number: 236579

PATIENT
  Age: 63 Year
  Sex: Female
  Weight: 93 kg

DRUGS (10)
  1. XOLAIR [Suspect]
     Indication: ASTHMA
     Dates: start: 20040201
  2. SYNTHROID [Concomitant]
  3. COZAAR [Concomitant]
  4. CARDIZEM [Concomitant]
  5. SPIRONOLACTONE [Concomitant]
  6. ALLEGRA [Concomitant]
  7. SINGULAIR [Concomitant]
  8. MAXAIR [Concomitant]
  9. PULMICORT [Concomitant]
  10. EPIPEN (EPINEPHRINE) [Concomitant]

REACTIONS (7)
  - BRONCHIAL OBSTRUCTION [None]
  - COUGH [None]
  - DYSPNOEA [None]
  - INSULIN-REQUIRING TYPE II DIABETES MELLITUS [None]
  - MUSCLE CONTRACTIONS INVOLUNTARY [None]
  - PHARYNGOLARYNGEAL PAIN [None]
  - SINUSITIS [None]
